FAERS Safety Report 23075114 (Version 1)
Quarter: 2023Q4

REPORT INFORMATION
  Report Type: Spontaneous
  Country: DE (occurrence: DE)
  Receive Date: 20231017
  Receipt Date: 20231017
  Transmission Date: 20240109
  Serious: Yes (Hospitalization, Other)
  Sender: FDA-Public Use
  Company Number: None

PATIENT
  Age: 84 Year
  Sex: Female

DRUGS (1)
  1. CLINDAMYCIN HYDROCHLORIDE [Suspect]
     Active Substance: CLINDAMYCIN HYDROCHLORIDE
     Indication: Dacryoadenitis acquired
     Dosage: 300 MG, 4X/DAY
     Route: 048
     Dates: start: 20230525, end: 20230531

REACTIONS (5)
  - Cerebellar infarction [Recovered/Resolved]
  - Ataxia [Not Recovered/Not Resolved]
  - Upper limb fracture [Recovered/Resolved]
  - Gastritis [Recovered/Resolved]
  - Oesophagitis [Recovered/Resolved]

NARRATIVE: CASE EVENT DATE: 20230101
